FAERS Safety Report 9260126 (Version 1)
Quarter: 2013Q2

REPORT INFORMATION
  Report Type: Spontaneous
  Country: US (occurrence: US)
  Receive Date: 20130429
  Receipt Date: 20130429
  Transmission Date: 20140414
  Serious: Yes (Hospitalization)
  Sender: FDA-Public Use
  Company Number: US-BAYER-2013-051794

PATIENT
  Age: 43 Year
  Sex: Female
  Weight: 59.86 kg

DRUGS (11)
  1. OCELLA [Suspect]
  2. LEXAPRO [Concomitant]
     Indication: ANXIETY
     Dosage: 20 MG, DAILY
     Route: 048
  3. LEXAPRO [Concomitant]
     Indication: ANXIETY
     Dosage: 10 MG, UNK
     Route: 048
  4. AZITHROMYCIN [Concomitant]
     Dosage: 250 MG, UNK
     Route: 048
  5. ABILIFY [Concomitant]
     Indication: BIPOLAR DISORDER
     Dosage: 2 MG, UNK
     Route: 048
  6. MECLIZINE [Concomitant]
     Dosage: 12.5 MG, UNK
     Route: 048
  7. AMOXICILLIN W/CLAVULANATE POTASSIUM [Concomitant]
     Dosage: 875-125 MG
     Route: 048
  8. ZYRTEC [Concomitant]
     Indication: MULTIPLE ALLERGIES
     Dosage: PRN
     Route: 048
  9. LITHIUM CARBONATE [Concomitant]
     Dosage: 300 MG, UNK
     Route: 048
  10. ATORVASTATIN [Concomitant]
     Dosage: 80 MG, HS
     Route: 048
  11. AMOXICILLIN [Concomitant]
     Indication: PHARYNGITIS STREPTOCOCCAL

REACTIONS (1)
  - Ischaemic stroke [None]
